FAERS Safety Report 22965137 (Version 3)
Quarter: 2023Q4

REPORT INFORMATION
  Report Type: Spontaneous
  Country: ES (occurrence: ES)
  Receive Date: 20230921
  Receipt Date: 20231117
  Transmission Date: 20240110
  Serious: Yes (Other)
  Sender: FDA-Public Use
  Company Number: ES-SA-SAC20230918000304

PATIENT
  Age: 58 Year
  Sex: Male

DRUGS (5)
  1. ELIGLUSTAT [Suspect]
     Active Substance: ELIGLUSTAT
     Indication: Gaucher^s disease type I
     Dosage: 84 MG, BID
     Route: 065
     Dates: start: 202209
  2. ALENDRONIC ACID [Concomitant]
     Active Substance: ALENDRONIC ACID
     Dosage: UNK
  3. CALCIUM\CHOLECALCIFEROL [Concomitant]
     Active Substance: CALCIUM\CHOLECALCIFEROL
     Dosage: UNK
  4. ROSUVASTATIN [Concomitant]
     Active Substance: ROSUVASTATIN
     Dosage: 20 MG, QD
  5. METFORMIN [Concomitant]
     Active Substance: METFORMIN HYDROCHLORIDE
     Dosage: UNK

REACTIONS (11)
  - Thrombocytopenia [Unknown]
  - Condition aggravated [Unknown]
  - Angiosarcoma [Unknown]
  - Osteonecrosis [Unknown]
  - Joint swelling [Unknown]
  - Peripheral swelling [Unknown]
  - Splenomegaly [Unknown]
  - Condition aggravated [Unknown]
  - Bone lesion [Unknown]
  - Neoplasm progression [Unknown]
  - Anaemia [Unknown]

NARRATIVE: CASE EVENT DATE: 20230501
